FAERS Safety Report 8346335-1 (Version None)
Quarter: 2012Q2

REPORT INFORMATION
  Report Type: 
  Country: None (occurrence: None)
  Receive Date: 20120509
  Receipt Date: 20120504
  Transmission Date: 20120825
  Serious: Yes (Hospitalization, Other)
  Sender: FDA-Public Use
  Company Number: CA-PFIZER INC-2012074501

PATIENT
  Age: 78 Year
  Sex: Male

DRUGS (7)
  1. CELEBREX [Suspect]
     Indication: OSTEOARTHRITIS
     Dosage: 200 MG, 1X/DAY
     Route: 048
  2. CELEBREX [Suspect]
     Indication: ARTHRALGIA
  3. ACEBUTOLOL [Concomitant]
     Dosage: 200 MG, 2X/DAY
     Route: 048
  4. VITAMIN B-12 [Concomitant]
     Indication: HYPOVITAMINOSIS
     Dosage: 1000 UG, 1X/DAY
     Route: 048
  5. PLAVIX [Concomitant]
     Dosage: 75 MG, 1X/DAY
     Route: 048
  6. ATASOL [Concomitant]
     Indication: PAIN
     Dosage: 30 MG, AS NEEDED
     Route: 048
  7. TERAZOSIN [Concomitant]
     Indication: BENIGN PROSTATIC HYPERPLASIA
     Dosage: 5 MG, 1X/DAY, AT BEDTIME

REACTIONS (4)
  - DIZZINESS [None]
  - VIITH NERVE PARALYSIS [None]
  - ISCHAEMIC STROKE [None]
  - HEMIPARESIS [None]
